FAERS Safety Report 15985231 (Version 1)
Quarter: 2019Q1

REPORT INFORMATION
  Report Type: Report from Study
  Country: CA (occurrence: CA)
  Receive Date: 20190220
  Receipt Date: 20190220
  Transmission Date: 20190418
  Serious: Yes (Life-Threatening, Hospitalization, Other)
  Sender: FDA-Public Use
  Company Number: CA-RECRO GAINESVILLE LLC-REPH-2019-000044

PATIENT
  Age: 51 Year
  Sex: Male
  Weight: 86 kg

DRUGS (3)
  1. LITHIUM CARBONATE. [Concomitant]
     Active Substance: LITHIUM CARBONATE
     Indication: CLUSTER HEADACHE
     Dosage: 300 MILLIGRAM, TID
     Route: 048
  2. ISOPTIN [Concomitant]
     Active Substance: VERAPAMIL HYDROCHLORIDE
     Indication: CLUSTER HEADACHE
     Dosage: 240 MILLIGRAM, TID
     Route: 048
  3. VERAPAMIL HYDROCHLORIDE SUSTAINED RELEASE [Suspect]
     Active Substance: VERAPAMIL HYDROCHLORIDE
     Indication: CLUSTER HEADACHE
     Dosage: 240 MILLIGRAM, TID
     Route: 048

REACTIONS (10)
  - Hypotension [Recovered/Resolved]
  - Off label use [Recovered/Resolved]
  - Toxicity to various agents [Recovered/Resolved]
  - Dizziness [Recovered/Resolved]
  - Bradycardia [Recovered/Resolved]
  - Gait inability [Recovered/Resolved]
  - Accelerated idioventricular rhythm [Recovered/Resolved]
  - Defect conduction intraventricular [Recovered/Resolved]
  - Asthenia [Recovered/Resolved]
  - Hyperhidrosis [Recovered/Resolved]
